FAERS Safety Report 7399510-7 (Version None)
Quarter: 2011Q2

REPORT INFORMATION
  Report Type: 
  Country: None (occurrence: None)
  Receive Date: 20110407
  Receipt Date: 20110328
  Transmission Date: 20111010
  Serious: Yes (Other)
  Sender: FDA-Public Use
  Company Number: US-ELI_LILLY_AND_COMPANY-US201103009006

PATIENT
  Age: 80 Year
  Sex: Female

DRUGS (3)
  1. FORTEO [Suspect]
     Indication: OSTEOPOROSIS
     Dosage: 20 UG, QD
  2. ARICEPT [Concomitant]
  3. FORTEO [Suspect]
     Dosage: 20 UG, QD
     Dates: start: 20110326

REACTIONS (4)
  - EYE DISORDER [None]
  - DEMENTIA ALZHEIMER'S TYPE [None]
  - EYELID DISORDER [None]
  - EYE INFECTION [None]
